FAERS Safety Report 7307371-7 (Version None)
Quarter: 2011Q1

REPORT INFORMATION
  Report Type: 
  Country: None (occurrence: None)
  Receive Date: 20110223
  Receipt Date: 20110216
  Transmission Date: 20110831
  Serious: Yes (Hospitalization)
  Sender: FDA-Public Use
  Company Number: FR-JNJFOC-20110204965

PATIENT
  Age: 11 Year

DRUGS (1)
  1. CONCERTA [Suspect]
     Indication: PSYCHOMOTOR HYPERACTIVITY
     Dosage: INITIATED ABOUT 3 MONTHS AGO
     Route: 048

REACTIONS (1)
  - MUSCULOSKELETAL CHEST PAIN [None]
